FAERS Safety Report 9214998 (Version 2)
Quarter: 2013Q2

REPORT INFORMATION
  Report Type: Spontaneous
  Country: BR (occurrence: BR)
  Receive Date: 20130405
  Receipt Date: 20130410
  Transmission Date: 20140414
  Serious: Yes (Other)
  Sender: FDA-Public Use
  Company Number: PHHY2013BR032383

PATIENT
  Age: 6 Year
  Sex: Male
  Weight: 22 kg

DRUGS (7)
  1. TOFRANIL [Suspect]
     Indication: DEPRESSION
     Dosage: 1 DF, QD
     Route: 048
     Dates: start: 201206
  2. TOFRANIL [Interacting]
     Indication: AGGRESSION
     Dosage: 2 DF, QD
     Route: 048
  3. TOFRANIL [Interacting]
     Dosage: 3 DF, QD
     Route: 048
  4. TOFRANIL [Interacting]
     Dosage: 2 DF, AT NIGHT
     Route: 048
     Dates: start: 20130314
  5. TOFRANIL [Interacting]
     Dosage: 1 DF
     Dates: start: 20130318, end: 20130322
  6. TOFRANIL-PM [Suspect]
     Indication: DEPRESSION
     Dosage: 1 DF, QD
     Route: 048
  7. SERTRALINE ZYDUS [Interacting]
     Indication: DEPRESSION
     Dosage: 1 DF, IN THE MORNING
     Route: 048
     Dates: start: 20130314, end: 20130317

REACTIONS (5)
  - Toxicity to various agents [Recovering/Resolving]
  - Chest pain [Recovering/Resolving]
  - Dyspnoea [Unknown]
  - Vomiting [Unknown]
  - Aggression [Recovering/Resolving]
